FAERS Safety Report 7518274-7 (Version None)
Quarter: 2011Q2

REPORT INFORMATION
  Report Type: 
  Country: None (occurrence: None)
  Receive Date: 20110523
  Receipt Date: 20110511
  Transmission Date: 20111010
  Serious: Yes (Hospitalization)
  Sender: FDA-Public Use
  Company Number: 1000020950

PATIENT
  Age: 80 Year
  Sex: Male

DRUGS (6)
  1. MEMANTINE [Suspect]
     Dosage: 20 MG (20 MG, 1 IN 1 D)
     Dates: start: 20100327, end: 20110326
  2. FENTANYL [Suspect]
     Dosage: 1 DF (1 DOSAGE FORMS, 1 IN 1 D)
     Dates: start: 20110325, end: 20110326
  3. FOLINE (FOLIC ACID) (FOLIC ACID) [Concomitant]
  4. ESCITALOPRAM [Suspect]
     Dosage: 10 MG (10 MG, 1 IN 1 D)
     Dates: start: 20100327, end: 20110326
  5. TAMSULOSINE HYDROCHLORIDE (TAMSULOSIN HYDROCHLORIDE) (TAMSULOSIN HYDRO [Concomitant]
  6. DUTASTERIDE (DUTASTERIDE) (DUTASTERIDE) [Concomitant]

REACTIONS (1)
  - SOPOR [None]
